FAERS Safety Report 7464800-6 (Version None)
Quarter: 2011Q2

REPORT INFORMATION
  Report Type: 
  Country: None (occurrence: None)
  Receive Date: 20110509
  Receipt Date: 20110411
  Transmission Date: 20111010
  Serious: Yes (Hospitalization, Other)
  Sender: FDA-Public Use
  Company Number: US-BAYER-2011-009071

PATIENT
  Age: 36 Year
  Sex: Female
  Weight: 59 kg

DRUGS (4)
  1. YAZ [Suspect]
     Indication: CONTRACEPTION
     Dosage: UNK
     Dates: start: 20080104, end: 20090129
  2. AMOXICILLIN [Concomitant]
     Dosage: UNK
     Dates: start: 20081101
  3. AMOXICILLIN [Concomitant]
     Dosage: UNK
     Dates: start: 20070601
  4. CIPRO [Concomitant]
     Dosage: UNK
     Dates: start: 20081101

REACTIONS (4)
  - OEDEMA PERIPHERAL [None]
  - DEEP VEIN THROMBOSIS [None]
  - PAIN IN EXTREMITY [None]
  - SKIN DISCOLOURATION [None]
